FAERS Safety Report 16324448 (Version 1)
Quarter: 2019Q2

REPORT INFORMATION
  Report Type: Spontaneous
  Country: US (occurrence: US)
  Receive Date: 20190411
  Receipt Date: 20190411
  Transmission Date: 20190711
  Serious: Yes (Hospitalization)
  Sender: FDA-Public Use
  Company Number: None

PATIENT
  Age: 61 Year
  Sex: Male

DRUGS (19)
  1. OCTREOTIDE 1000 MCG/ML [Concomitant]
     Dates: start: 20180912
  2. ENOXAPARIN 80/0.8 ML [Concomitant]
     Dates: start: 20190111
  3. ENSTILAR SER [Concomitant]
     Dates: start: 20190405
  4. PREDNISONE 10 MG [Concomitant]
     Active Substance: PREDNISONE
     Dates: start: 20190201
  5. VECTICAL 3 MCG/GM [Concomitant]
     Dates: start: 20110320
  6. CREON 12000 UNIT [Concomitant]
     Dates: start: 20180827
  7. GLIPIZIDE 2.5 MG [Concomitant]
     Dates: start: 20180614
  8. TEMOZOLOMIDE 100 MG [Concomitant]
     Active Substance: TEMOZOLOMIDE
     Dates: start: 20180322
  9. CAPECITABINE. [Suspect]
     Active Substance: CAPECITABINE
     Indication: COLON CANCER
     Dosage: ?          OTHER FREQUENCY:2XDAY DAYS 1-14;?
     Route: 048
     Dates: start: 20180911
  10. CIPROFLOX 250 MG [Concomitant]
     Dates: start: 20110328
  11. TIMOLOL SOL 0.5% [Concomitant]
     Dates: start: 20180803
  12. CAPECITABINE 500 MG [Suspect]
     Active Substance: CAPECITABINE
     Indication: COLON CANCER
     Dosage: ?          OTHER FREQUENCY:2XDAY  DAY 1-14;?
     Route: 048
     Dates: start: 20180911
  13. BYSTOLIC [Suspect]
     Active Substance: NEBIVOLOL HYDROCHLORIDE
     Dates: start: 20110313
  14. POT CHLORIDE 10 MCG CR [Concomitant]
     Dates: start: 20190205
  15. METOPROLOL 25MG [Concomitant]
     Active Substance: METOPROLOL
     Dates: start: 20190307
  16. RANITIDINE 300 MG [Concomitant]
     Active Substance: RANITIDINE HYDROCHLORIDE
     Dates: start: 20190201
  17. PROCTO-MED HC 2.5% [Concomitant]
     Dates: start: 20190311
  18. RAMIPRIL 10 MG [Concomitant]
     Dates: start: 20190205
  19. AMLODIPINE .5 MG [Concomitant]
     Dates: start: 20190207

REACTIONS (1)
  - Nervous system disorder [None]
